FAERS Safety Report 26171831 (Version 1)
Quarter: 2025Q4

REPORT INFORMATION
  Report Type: Spontaneous
  Country: US (occurrence: US)
  Receive Date: 20251217
  Receipt Date: 20251217
  Transmission Date: 20260117
  Serious: Yes (Hospitalization)
  Sender: DR REDDYS
  Company Number: None

PATIENT
  Age: 71 Year
  Sex: Male

DRUGS (2)
  1. ALLOPURINOL [Suspect]
     Active Substance: ALLOPURINOL
     Indication: Gout
     Dosage: SINCE PAST THREE MONTHS, DOSE WAS INCREASED 4 WEEKS PRIOR TO HOSPITALIZATION
  2. PEGLOTICASE [Concomitant]
     Active Substance: PEGLOTICASE
     Indication: Gout
     Dosage: PAST THREE MONTHS

REACTIONS (2)
  - Vasculitis [Recovered/Resolved]
  - Acute kidney injury [Recovered/Resolved]
